FAERS Safety Report 16697710 (Version 1)
Quarter: 2019Q4

REPORT INFORMATION
  Report Type: Spontaneous
  Country: US (occurrence: US)
  Receive Date: 20190812
  Receipt Date: 20190812
  Transmission Date: 20200122
  Serious: Yes (Life-Threatening, Hospitalization)
  Sender: FDA-Public Use
  Company Number: None

PATIENT
  Age: 54 Year
  Sex: Male
  Weight: 99 kg

DRUGS (6)
  1. FLORASTOR [Concomitant]
     Active Substance: SACCHAROMYCES CEREVISIAE
  2. LEVOFLOXACIN. [Suspect]
     Active Substance: LEVOFLOXACIN
     Indication: HYPOXIA
     Route: 042
     Dates: start: 20190808, end: 20190808
  3. TYLENOL [Concomitant]
     Active Substance: ACETAMINOPHEN
  4. LEVOFLOXACIN. [Suspect]
     Active Substance: LEVOFLOXACIN
     Indication: ASPIRATION
     Route: 042
     Dates: start: 20190808, end: 20190808
  5. CEFUOXAMINE [Concomitant]
  6. URETER STENT [Concomitant]

REACTIONS (6)
  - Presyncope [None]
  - Nausea [None]
  - Emotional distress [None]
  - Hyperhidrosis [None]
  - Blood pressure systolic decreased [None]
  - Feeling hot [None]

NARRATIVE: CASE EVENT DATE: 20190808
